FAERS Safety Report 18906882 (Version 4)
Quarter: 2021Q2

REPORT INFORMATION
  Report Type: Spontaneous
  Country: US (occurrence: US)
  Receive Date: 20210217
  Receipt Date: 20210402
  Transmission Date: 20210717
  Serious: Yes (Hospitalization, Other)
  Sender: FDA-Public Use
  Company Number: US-PFIZER INC-2021137123

PATIENT
  Age: 64 Year
  Sex: Male

DRUGS (2)
  1. INLYTA [Suspect]
     Active Substance: AXITINIB
     Dosage: 5 MG
     Dates: start: 20210201
  2. INLYTA [Suspect]
     Active Substance: AXITINIB
     Dosage: 5 MG
     Dates: start: 20201204

REACTIONS (11)
  - Diarrhoea [Unknown]
  - Chills [Unknown]
  - Paraesthesia oral [Unknown]
  - Pain in extremity [Unknown]
  - Glossodynia [Unknown]
  - Blood pressure diastolic increased [Unknown]
  - Dizziness [Unknown]
  - Product dose omission issue [Unknown]
  - Mouth swelling [Unknown]
  - Bone pain [Not Recovered/Not Resolved]
  - Thirst [Unknown]
